FAERS Safety Report 14585997 (Version 3)
Quarter: 2019Q1

REPORT INFORMATION
  Report Type: Spontaneous
  Country: IT (occurrence: IT)
  Receive Date: 20180301
  Receipt Date: 20190116
  Transmission Date: 20190417
  Serious: Yes (Hospitalization)
  Sender: FDA-Public Use
  Company Number: IT-AUROBINDO-AUR-APL-2018-010024

PATIENT
  Age: 67 Year
  Sex: Male

DRUGS (1)
  1. LOSARTAN FILM-COATED TABLETS [Suspect]
     Active Substance: LOSARTAN
     Indication: HYPERTENSION
     Dosage: 50 MG/DAY
     Route: 048

REACTIONS (2)
  - Malabsorption [Recovered/Resolved]
  - Gastrointestinal disorder [Recovered/Resolved]
